FAERS Safety Report 11090287 (Version 1)
Quarter: 2015Q2

REPORT INFORMATION
  Report Type: Spontaneous
  Country: RU (occurrence: RU)
  Receive Date: 20150505
  Receipt Date: 20150505
  Transmission Date: 20150821
  Serious: Yes (Hospitalization, Other)
  Sender: FDA-Public Use
  Company Number: RU-APOTEX-2015AP008882

PATIENT
  Age: 20 Year
  Sex: Male
  Weight: 76 kg

DRUGS (2)
  1. PHENAZEPAM [Suspect]
     Active Substance: PHENAZEPAM
     Indication: TENSION
     Dosage: 4 MG, QD
     Dates: start: 20150328, end: 20150410
  2. PAXIL [Suspect]
     Active Substance: PAROXETINE HYDROCHLORIDE
     Indication: DEPRESSION
     Dosage: 40 MG, QD
     Dates: start: 20150321, end: 20150408

REACTIONS (1)
  - Anxiety [Recovered/Resolved]

NARRATIVE: CASE EVENT DATE: 20150403
